FAERS Safety Report 22159530 (Version 1)
Quarter: 2023Q1

REPORT INFORMATION
  Report Type: Spontaneous
  Country: AU (occurrence: None)
  Receive Date: 20230331
  Receipt Date: 20230331
  Transmission Date: 20230418
  Serious: Yes (Life-Threatening, Other)
  Sender: FDA-Public Use
  Company Number: 2023A073974

PATIENT
  Age: 48 Year
  Sex: Female

DRUGS (12)
  1. DAPAGLIFLOZIN [Suspect]
     Active Substance: DAPAGLIFLOZIN
  2. BISOPROLOL [Concomitant]
     Active Substance: BISOPROLOL
  3. CYCLOPHOSPHAMIDE [Concomitant]
     Active Substance: CYCLOPHOSPHAMIDE
  4. BORTEZOMIB [Concomitant]
     Active Substance: BORTEZOMIB
  5. CARFILZOMIB [Concomitant]
     Active Substance: CARFILZOMIB
  6. DEXAMETHASONE [Concomitant]
     Active Substance: DEXAMETHASONE
  7. LENALIDOMIDE [Concomitant]
     Active Substance: LENALIDOMIDE
  8. MELPHALAN [Concomitant]
     Active Substance: MELPHALAN
  9. RAMIPRIL [Concomitant]
     Active Substance: RAMIPRIL
  10. SACUBITRIL\VALSARTAN [Concomitant]
     Active Substance: SACUBITRIL\VALSARTAN
  11. SPIRONOLACTONE [Concomitant]
     Active Substance: SPIRONOLACTONE
  12. THALIDOMIDE [Concomitant]
     Active Substance: THALIDOMIDE

REACTIONS (25)
  - Multiple organ dysfunction syndrome [Unknown]
  - Pulmonary oedema [Unknown]
  - Pulseless electrical activity [Unknown]
  - Renal failure [Unknown]
  - Cardiogenic shock [Unknown]
  - Anxiety [Unknown]
  - Ascites [Unknown]
  - Asthenia [Unknown]
  - Atelectasis [Unknown]
  - Bradycardia [Unknown]
  - Cardiac failure [Unknown]
  - Confusional state [Unknown]
  - Dizziness [Unknown]
  - Drug intolerance [Unknown]
  - Dyspnoea [Unknown]
  - Effusion [Unknown]
  - Feeling abnormal [Unknown]
  - Functional gastrointestinal disorder [Unknown]
  - Hypoperfusion [Unknown]
  - Liver disorder [Unknown]
  - Nausea [Unknown]
  - Pain [Unknown]
  - Poor quality sleep [Unknown]
  - Wheezing [Unknown]
  - Therapeutic product effect incomplete [Unknown]
